FAERS Safety Report 5257288-7 (Version None)
Quarter: 2007Q1

REPORT INFORMATION
  Report Type: 
  Country: None (occurrence: None)
  Receive Date: 20070302
  Receipt Date: 20061106
  Transmission Date: 20070707
  Serious: Yes (Other)
  Sender: FDA-Public Use
  Company Number: 2006SP005207

PATIENT
  Age: 76 Year
  Sex: Male

DRUGS (7)
  1. CLARITIN [Suspect]
     Indication: DRUG USE FOR UNKNOWN INDICATION
     Dosage: ; PO
     Route: 048
  2. AMLODIPINE BESYLATE [Suspect]
     Indication: CEREBRAL INFARCTION
  3. FLUTICASONE PROPIONATE [Suspect]
     Indication: CEREBRAL INFARCTION
  4. ASPIRIN [Concomitant]
  5. OMEPRAL [Concomitant]
  6. NORVASC [Concomitant]
  7. FLUNASE [Concomitant]

REACTIONS (1)
  - NO ADVERSE EFFECT [None]
